FAERS Safety Report 10149402 (Version 1)
Quarter: 2014Q2

REPORT INFORMATION
  Report Type: Spontaneous
  Country: US (occurrence: None)
  Receive Date: 20140430
  Receipt Date: 20140430
  Transmission Date: 20141212
  Serious: Yes (Hospitalization)
  Sender: FDA-Public Use
  Company Number: None

PATIENT
  Age: 27 Year
  Sex: Female

DRUGS (7)
  1. RITUXIMAB [Suspect]
     Indication: SYSTEMIC LUPUS ERYTHEMATOSUS
     Route: 042
     Dates: start: 20131021, end: 20131021
  2. DEXAMETHASONE [Concomitant]
  3. DIPHENHYDRAMINE [Concomitant]
  4. LORAZEPAM [Concomitant]
  5. EPINEPHRINE [Concomitant]
  6. TEMAZEPAM [Concomitant]
  7. METHYLPREDNISOLONE [Concomitant]

REACTIONS (4)
  - Chest pain [None]
  - Oropharyngeal pain [None]
  - Discomfort [None]
  - Infusion related reaction [None]
